FAERS Safety Report 15369394 (Version 1)
Quarter: 2018Q3

REPORT INFORMATION
  Report Type: Report from Study
  Country: CN (occurrence: CN)
  Receive Date: 20180911
  Receipt Date: 20180911
  Transmission Date: 20181010
  Serious: Yes (Other)
  Sender: FDA-Public Use
  Company Number: CN-ROCHE-2180163

PATIENT

DRUGS (1)
  1. CAPECITABINE. [Suspect]
     Active Substance: CAPECITABINE
     Indication: NASOPHARYNGEAL CANCER
     Route: 048

REACTIONS (3)
  - Leukopenia [Unknown]
  - Oral disorder [Unknown]
  - Skin reaction [Unknown]
